FAERS Safety Report 24817119 (Version 1)
Quarter: 2025Q1

REPORT INFORMATION
  Report Type: Spontaneous
  Country: CL (occurrence: CL)
  Receive Date: 20250108
  Receipt Date: 20250108
  Transmission Date: 20250408
  Serious: Yes (Hospitalization, Other)
  Sender: JOHNSON AND JOHNSON
  Company Number: CL-JNJFOC-20241291275

PATIENT
  Sex: Female

DRUGS (2)
  1. REMICADE [Suspect]
     Active Substance: INFLIXIMAB
     Indication: Crohn^s disease
     Route: 041
  2. ADALIMUMAB [Suspect]
     Active Substance: ADALIMUMAB

REACTIONS (2)
  - Crohn^s disease [Not Recovered/Not Resolved]
  - Upper motor neurone lesion [Unknown]
